FAERS Safety Report 25124915 (Version 1)
Quarter: 2025Q1

REPORT INFORMATION
  Report Type: Spontaneous
  Country: US (occurrence: US)
  Receive Date: 20250326
  Receipt Date: 20250326
  Transmission Date: 20250409
  Serious: Yes (Other)
  Sender: BIOGEN
  Company Number: US-BIOGEN-2025BI01305098

PATIENT
  Age: 22 Year
  Sex: Female

DRUGS (1)
  1. ZURZUVAE [Suspect]
     Active Substance: ZURANOLONE
     Indication: Product used for unknown indication
     Route: 050

REACTIONS (3)
  - Suicidal ideation [Unknown]
  - Feeling guilty [Unknown]
  - Feeling of despair [Unknown]
